FAERS Safety Report 26205658 (Version 1)
Quarter: 2025Q4

REPORT INFORMATION
  Report Type: Spontaneous
  Country: US (occurrence: US)
  Receive Date: 20251229
  Receipt Date: 20251229
  Transmission Date: 20260117
  Serious: Yes (Hospitalization, Other)
  Sender: Haleon PLC
  Company Number: US-HALEON-2280882

PATIENT
  Age: 34 Year
  Sex: Female

DRUGS (1)
  1. ACETAMINOPHEN [Suspect]
     Active Substance: ACETAMINOPHEN
     Indication: Product used for unknown indication

REACTIONS (5)
  - Thrombocytopenia [Recovered/Resolved]
  - Hypertransaminasaemia [Recovered/Resolved]
  - Abdominal pain [Unknown]
  - Vomiting [Unknown]
  - Intentional overdose [Unknown]
